FAERS Safety Report 10478971 (Version 2)
Quarter: 2014Q3

REPORT INFORMATION
  Report Type: Spontaneous
  Country: BE (occurrence: BE)
  Receive Date: 20140926
  Receipt Date: 20140926
  Transmission Date: 20150326
  Serious: Yes (Disabling)
  Sender: FDA-Public Use
  Company Number: BE-ASTRAZENECA-2014SE66194

PATIENT
  Age: 55 Year
  Sex: Female

DRUGS (3)
  1. ARIMIDEX [Suspect]
     Active Substance: ANASTROZOLE
     Indication: BREAST CANCER
     Route: 048
     Dates: start: 20140501, end: 20140906
  2. ARIMIDEX [Suspect]
     Active Substance: ANASTROZOLE
     Indication: POLYP
     Route: 048
     Dates: start: 20140501, end: 20140906
  3. NOBIRETIC [Concomitant]
     Indication: HYPERTENSION
     Dosage: 5MG/12.5MG DAILY
     Dates: start: 201307

REACTIONS (8)
  - Arthralgia [Unknown]
  - Vision blurred [Unknown]
  - Insomnia [Unknown]
  - Weight increased [Unknown]
  - Urine odour abnormal [Unknown]
  - Limb discomfort [Unknown]
  - Alopecia [Unknown]
  - Headache [Unknown]

NARRATIVE: CASE EVENT DATE: 2014
